FAERS Safety Report 5670940-4 (Version None)
Quarter: 2008Q1

REPORT INFORMATION
  Report Type: 
  Country: None (occurrence: None)
  Receive Date: 20080313
  Receipt Date: 20080304
  Transmission Date: 20080703
  Serious: Yes (Hospitalization)
  Sender: FDA-Public Use
  Company Number: 1-15798506

PATIENT
  Age: 76 Year
  Sex: Male
  Weight: 122.4712 kg

DRUGS (12)
  1. FENTANYL [Suspect]
     Indication: BACK PAIN
     Dosage: 50MCG/HR EVERY 3 DAYS, TRANSDERMAL
     Route: 062
     Dates: start: 20071001
  2. FENTANYL [Suspect]
     Indication: PAIN IN EXTREMITY
     Dosage: 50MCG/HR EVERY 3 DAYS, TRANSDERMAL
     Route: 062
     Dates: start: 20071001
  3. PROCARDIA 30MG [Concomitant]
  4. ALTACE [Concomitant]
  5. LIPITOR [Concomitant]
  6. ZOLOFT [Concomitant]
  7. VICODIN [Concomitant]
  8. MULTI-VITAMIN [Concomitant]
  9. ASCORBIC ACID [Concomitant]
  10. FISH OIL [Concomitant]
  11. ASPIRIN [Concomitant]
  12. GARLIC [Concomitant]

REACTIONS (1)
  - COLON CANCER [None]
